FAERS Safety Report 14016713 (Version 1)
Quarter: 2017Q3

REPORT INFORMATION
  Report Type: Spontaneous
  Country: US (occurrence: US)
  Receive Date: 20170927
  Receipt Date: 20170927
  Transmission Date: 20171128
  Serious: Yes (Hospitalization, Other)
  Sender: FDA-Public Use
  Company Number: US-PFIZER INC-2006133768

PATIENT
  Age: 73 Year
  Sex: Male
  Weight: 87.5 kg

DRUGS (2)
  1. CELEBREX [Suspect]
     Active Substance: CELECOXIB
     Indication: PAIN
     Dosage: 200 MG, 1X/DAY
     Route: 048
     Dates: start: 20020215, end: 20041221
  2. VIOXX [Suspect]
     Active Substance: ROFECOXIB
     Indication: PAIN MANAGEMENT
     Dosage: 25 MG, 1X/DAY
     Route: 048
     Dates: start: 20010101, end: 20040930

REACTIONS (1)
  - Ischaemic stroke [Unknown]

NARRATIVE: CASE EVENT DATE: 200408
